FAERS Safety Report 21753001 (Version 1)
Quarter: 2022Q4

REPORT INFORMATION
  Report Type: Spontaneous
  Country: US (occurrence: US)
  Receive Date: 20221220
  Receipt Date: 20221220
  Transmission Date: 20230113
  Serious: Yes (Other)
  Sender: FDA-Public Use
  Company Number: US-GLAXOSMITHKLINE-US2022AMR187256

PATIENT

DRUGS (2)
  1. NUCALA [Suspect]
     Active Substance: MEPOLIZUMAB
     Indication: Product used for unknown indication
     Dosage: UNK
  2. DUPIXENT [Suspect]
     Active Substance: DUPILUMAB
     Indication: Nasal polyps
     Dosage: 300 MG/2ML, Z EVERY OTHER WEEK
     Route: 058
     Dates: end: 2022

REACTIONS (12)
  - Cerebrovascular accident [Unknown]
  - Injection site hypoaesthesia [Unknown]
  - Injection site paraesthesia [Unknown]
  - Toothache [Unknown]
  - Insomnia [Unknown]
  - Sinusitis [Unknown]
  - Oral infection [Unknown]
  - Mobility decreased [Unknown]
  - Hypoaesthesia [Unknown]
  - Injection site exfoliation [Not Recovered/Not Resolved]
  - Injection site rash [Not Recovered/Not Resolved]
  - Exfoliative rash [Unknown]
